FAERS Safety Report 6948754-4 (Version None)
Quarter: 2010Q3

REPORT INFORMATION
  Report Type: 
  Country: None (occurrence: None)
  Receive Date: 20100828
  Receipt Date: 20091110
  Transmission Date: 20110219
  Serious: No
  Sender: FDA-Public Use
  Company Number: US-ABBOTT-09P-163-0608587-00

PATIENT
  Sex: Female
  Weight: 61.744 kg

DRUGS (1)
  1. NIASPAN [Suspect]
     Indication: LIPOPROTEIN (A) ABNORMAL
     Dates: start: 20081001, end: 20091101

REACTIONS (9)
  - DIARRHOEA [None]
  - DIZZINESS [None]
  - DYSGEUSIA [None]
  - ERYTHEMA [None]
  - FEELING HOT [None]
  - FLUSHING [None]
  - GASTRIC DISORDER [None]
  - PARAESTHESIA [None]
  - PRURITUS [None]
